FAERS Safety Report 23573900 (Version 1)
Quarter: 2024Q1

REPORT INFORMATION
  Report Type: Spontaneous
  Country: FR (occurrence: FR)
  Receive Date: 20240228
  Receipt Date: 20240228
  Transmission Date: 20240410
  Serious: Yes (Hospitalization)
  Sender: FDA-Public Use
  Company Number: FR-AFSSAPS-LL2024000296

PATIENT
  Age: 68 Year
  Sex: Female

DRUGS (1)
  1. PANTOPRAZOLE [Suspect]
     Active Substance: PANTOPRAZOLE
     Indication: Gastritis
     Dosage: UNK
     Route: 048
     Dates: end: 20240203

REACTIONS (2)
  - Hypomagnesaemia [Not Recovered/Not Resolved]
  - Hypoparathyroidism secondary [Not Recovered/Not Resolved]

NARRATIVE: CASE EVENT DATE: 20240203
